FAERS Safety Report 8227130-0 (Version None)
Quarter: 2012Q1

REPORT INFORMATION
  Report Type: 
  Country: None (occurrence: None)
  Receive Date: 20120322
  Receipt Date: 20120313
  Transmission Date: 20120608
  Serious: Yes (Other)
  Sender: FDA-Public Use
  Company Number: GB-JNJFOC-20120307315

PATIENT
  Age: 9 Year
  Sex: Male

DRUGS (1)
  1. CONCERTA [Suspect]
     Indication: ATTENTION DEFICIT/HYPERACTIVITY DISORDER
     Route: 048
     Dates: start: 20120204, end: 20120218

REACTIONS (7)
  - THIRST [None]
  - AGITATION [None]
  - HALLUCINATION [None]
  - TONGUE SPASM [None]
  - PANIC ATTACK [None]
  - ANXIETY [None]
  - ABDOMINAL PAIN UPPER [None]
